FAERS Safety Report 21111955 (Version 1)
Quarter: 2022Q3

REPORT INFORMATION
  Report Type: Spontaneous
  Country: SE (occurrence: SE)
  Receive Date: 20220721
  Receipt Date: 20220721
  Transmission Date: 20221026
  Serious: Yes (Other)
  Sender: FDA-Public Use
  Company Number: None

PATIENT
  Age: 42 Year
  Sex: Male

DRUGS (14)
  1. TOPIRAMATE [Suspect]
     Active Substance: TOPIRAMATE
     Indication: Epilepsy
     Dosage: DOSERING 100MG+100MG+200 MG
     Route: 048
  2. INOVELON [Concomitant]
     Active Substance: RUFINAMIDE
     Dosage: 400 MG 4X2
     Route: 048
  3. LEVOMEPROMAZINE ORION [Concomitant]
     Dosage: 25 MG 2 TK
  4. PROPIOMAZINE [Concomitant]
     Active Substance: PROPIOMAZINE
     Dosage: 25 MG 1 TK
  5. FOLIC ACID ANHYDROUS [Concomitant]
     Route: 048
  6. TEMESTA [Concomitant]
     Dosage: 1 MG 1-2 VID BEHOV
     Route: 048
  7. MELATAN [Concomitant]
     Dosage: 5 MG 1 TK
     Route: 048
  8. MIDAZOLAM HYDROCHLORIDE [Concomitant]
     Active Substance: MIDAZOLAM HYDROCHLORIDE
     Dosage: 10 MG VID BEHOV
  9. OLANZAPINE [Concomitant]
     Active Substance: OLANZAPINE
     Route: 048
  10. HERMOLEPSIN RETARD [Concomitant]
     Route: 048
  11. HERMOLEPSIN RETARD [Concomitant]
     Dosage: 100 MG 1+1+2
     Route: 048
  12. AKINETON [Concomitant]
     Active Substance: BIPERIDEN HYDROCHLORIDE
     Dosage: 2 MG TABLETT
     Route: 048
  13. ACETAMINOPHEN [Concomitant]
     Active Substance: ACETAMINOPHEN
     Dosage: 500 MG VID BEHOV
     Route: 048
  14. CYANOCOBALAMIN [Concomitant]
     Active Substance: CYANOCOBALAMIN
     Dosage: 1 MG TABLETTER
     Route: 048

REACTIONS (3)
  - Urosepsis [Unknown]
  - Nephrolithiasis [Unknown]
  - Urinary tract infection [Unknown]
